FAERS Safety Report 9620770 (Version 1)
Quarter: 2013Q4

REPORT INFORMATION
  Report Type: Spontaneous
  Country: US (occurrence: US)
  Receive Date: 20131015
  Receipt Date: 20131015
  Transmission Date: 20140711
  Serious: Yes (Other)
  Sender: FDA-Public Use
  Company Number: US-JNJFOC-20131001233

PATIENT
  Sex: Male

DRUGS (1)
  1. BENGAY UNSPECIFIED [Suspect]
     Indication: MYALGIA
     Route: 061

REACTIONS (1)
  - Application site burn [Recovered/Resolved]
